FAERS Safety Report 16213430 (Version 1)
Quarter: 2019Q2

REPORT INFORMATION
  Report Type: Spontaneous
  Country: JP (occurrence: JP)
  Receive Date: 20190418
  Receipt Date: 20190418
  Transmission Date: 20190711
  Serious: Yes (Hospitalization)
  Sender: FDA-Public Use
  Company Number: JP-ELI_LILLY_AND_COMPANY-JP201904006303

PATIENT
  Age: 83 Year
  Sex: Female

DRUGS (13)
  1. RETICOLAN [Concomitant]
     Active Substance: METHYLCOBALAMIN
  2. BELSOMRA [Concomitant]
     Active Substance: SUVOREXANT
  3. MAGNESIUM OXIDE. [Concomitant]
     Active Substance: MAGNESIUM OXIDE
  4. DULOXETINE HYDROCHLORIDE. [Suspect]
     Active Substance: DULOXETINE HYDROCHLORIDE
     Indication: DEPRESSION
     Dosage: 20 MG, DAILY
     Route: 048
     Dates: start: 20181208, end: 20190108
  5. TELMISARTAN. [Concomitant]
     Active Substance: TELMISARTAN
  6. SULPIRIDE [Concomitant]
     Active Substance: SULPIRIDE
  7. CELECOX [Concomitant]
     Active Substance: CELECOXIB
  8. BROTIZOLAM [Concomitant]
     Active Substance: BROTIZOLAM
     Indication: INSOMNIA
     Dosage: UNK
     Route: 048
  9. ROZEREM [Concomitant]
     Active Substance: RAMELTEON
  10. SENNA ALEXANDRINA [Concomitant]
     Active Substance: SENNA LEAF
  11. ATORVASTATIN [Suspect]
     Active Substance: ATORVASTATIN
     Indication: HYPERCHOLESTEROLAEMIA
     Dosage: UNK
     Route: 048
  12. OPALMON [Concomitant]
     Active Substance: LIMAPROST
     Indication: LUMBAR SPINAL STENOSIS
     Dosage: UNK
     Route: 048
  13. DEZOLAM [Concomitant]
     Active Substance: ETIZOLAM

REACTIONS (3)
  - Delirium [Unknown]
  - Rhabdomyolysis [Recovered/Resolved]
  - Altered state of consciousness [Unknown]

NARRATIVE: CASE EVENT DATE: 20190109
